FAERS Safety Report 9993130 (Version 1)
Quarter: 2014Q1

REPORT INFORMATION
  Report Type: Spontaneous
  Country: US (occurrence: US)
  Receive Date: 20140310
  Receipt Date: 20140310
  Transmission Date: 20141002
  Serious: No
  Sender: FDA-Public Use
  Company Number: US-ABBVIE-13P-163-1182884-00

PATIENT
  Age: 41 Year
  Sex: Female
  Weight: 108.96 kg

DRUGS (8)
  1. LUPRON DEPOT [Suspect]
     Indication: ENDOMETRIOSIS
     Dates: start: 2007
  2. OXYCODONE [Concomitant]
     Indication: PAIN
  3. XANAX [Concomitant]
     Indication: ANXIETY
  4. CYMBALTA [Concomitant]
     Indication: DEPRESSION
  5. NORZINE [Concomitant]
     Indication: ENDOMETRIOSIS
  6. NAPROXEN [Concomitant]
     Indication: ARTHRITIS
  7. LISINOPRIL [Concomitant]
     Indication: HYPERTENSION
  8. UNKNOWN MEDICATION [Concomitant]
     Indication: INFLAMMATION

REACTIONS (2)
  - Incorrect route of drug administration [Not Recovered/Not Resolved]
  - Injection site vesicles [Not Recovered/Not Resolved]
